FAERS Safety Report 23017671 (Version 2)
Quarter: 2023Q4

REPORT INFORMATION
  Report Type: Spontaneous
  Country: US (occurrence: US)
  Receive Date: 20231003
  Receipt Date: 20231008
  Transmission Date: 20240109
  Serious: No
  Sender: FDA-Public Use
  Company Number: US-AMGEN-USASP2023172558

PATIENT

DRUGS (1)
  1. AMJEVITA [Suspect]
     Active Substance: ADALIMUMAB-ATTO
     Indication: Product used for unknown indication
     Dosage: UNK
     Route: 065

REACTIONS (1)
  - Asthenia [Unknown]
